FAERS Safety Report 5107037-8 (Version None)
Quarter: 2006Q3

REPORT INFORMATION
  Report Type: 
  Country: None (occurrence: None)
  Receive Date: 20060913
  Receipt Date: 20060829
  Transmission Date: 20061208
  Serious: No
  Sender: FDA-Public Use
  Company Number: US200608000619

PATIENT
  Age: 54 Year
  Sex: Male
  Weight: 76.6 kg

DRUGS (6)
  1. CYMBALTA [Suspect]
     Indication: PAIN
     Dosage: 60 MG; 60 MG
     Dates: start: 20051101, end: 20060420
  2. CYMBALTA [Suspect]
     Indication: PAIN
     Dosage: 60 MG; 60 MG
     Dates: start: 20060623, end: 20060720
  3. XANAX [Concomitant]
  4. OXYCODONE HCL [Concomitant]
  5. NEXIUM [Concomitant]
  6. PRILOSEC [Concomitant]

REACTIONS (3)
  - ALANINE AMINOTRANSFERASE INCREASED [None]
  - ASPARTATE AMINOTRANSFERASE INCREASED [None]
  - MALAISE [None]
